FAERS Safety Report 11322727 (Version 1)
Quarter: 2015Q3

REPORT INFORMATION
  Report Type: Spontaneous
  Country: US (occurrence: None)
  Receive Date: 20150729
  Receipt Date: 20150729
  Transmission Date: 20151125
  Serious: No
  Sender: FDA-Public Use
  Company Number: None

PATIENT
  Age: 74 Year
  Sex: Female
  Weight: 74.39 kg

DRUGS (12)
  1. ZETIA [Suspect]
     Active Substance: EZETIMIBE
     Indication: BLOOD CHOLESTEROL INCREASED
     Dosage: THERAPY?OCT 2014?JUNE 29, 2014
     Route: 048
     Dates: start: 201410
  2. BENADRYL [Concomitant]
     Active Substance: DIPHENHYDRAMINE HYDROCHLORIDE
  3. ASA EC [Concomitant]
  4. ICE PACKS [Concomitant]
  5. ALPHAGAN P [Concomitant]
     Active Substance: BRIMONIDINE TARTRATE
  6. HYDROCHLOROTHIAZIDE. [Concomitant]
     Active Substance: HYDROCHLOROTHIAZIDE
  7. VIT. A + D OINTMENT [Concomitant]
  8. CERVICAL COLLAR [Concomitant]
  9. 4 PRONG WALKING CANE [Concomitant]
  10. EXERCISING AT YMCA [Concomitant]
  11. WARM-}HOT SHOWER [Concomitant]
  12. AMLODIPINE BESYLATE. [Concomitant]
     Active Substance: AMLODIPINE BESYLATE

REACTIONS (16)
  - Myalgia [None]
  - Decreased activity [None]
  - Tenderness [None]
  - Swelling face [None]
  - Hyperaesthesia [None]
  - Mobility decreased [None]
  - Pain [None]
  - Musculoskeletal pain [None]
  - Swelling [None]
  - Muscle spasms [None]
  - Choking [None]
  - Pruritus generalised [None]
  - Rash [None]
  - Muscular weakness [None]
  - Cyst [None]
  - Urinary incontinence [None]

NARRATIVE: CASE EVENT DATE: 20150629
